FAERS Safety Report 24278468 (Version 1)
Quarter: 2024Q3

REPORT INFORMATION
  Report Type: Spontaneous
  Country: US (occurrence: None)
  Receive Date: 20240830
  Receipt Date: 20240830
  Transmission Date: 20241016
  Serious: Yes (Life-Threatening, Hospitalization)
  Sender: Public
  Company Number: None

PATIENT
  Age: 65 Year
  Sex: Female
  Weight: 85.5 kg

DRUGS (17)
  1. PHENELZINE [Suspect]
     Active Substance: PHENELZINE
     Indication: Depression
     Dosage: OTHER QUANTITY : 30 TABLET(S);?FREQUENCY : 3 TIMES A DAY;?
     Route: 048
     Dates: start: 20180831
  2. LAMICTAL [Suspect]
     Active Substance: LAMOTRIGINE
  3. NARDIL [Concomitant]
     Active Substance: PHENELZINE SULFATE
  4. LAMOTRIGINE [Concomitant]
     Active Substance: LAMOTRIGINE
  5. ASPIRIN [Concomitant]
     Active Substance: ASPIRIN
  6. bariatric [Concomitant]
  7. IRON [Concomitant]
     Active Substance: IRON
  8. CALCIUM [Concomitant]
     Active Substance: CALCIUM
  9. VITAMIN K [Concomitant]
     Active Substance: PHYTONADIONE
  10. VITAMIN D3 [Concomitant]
     Active Substance: CHOLECALCIFEROL
  11. ROSUVASTATIN [Concomitant]
     Active Substance: ROSUVASTATIN\ROSUVASTATIN CALCIUM
  12. pantoprozal [Concomitant]
  13. GABAPENTIN [Concomitant]
     Active Substance: GABAPENTIN
  14. OCUVITE [Concomitant]
     Active Substance: VITAMINS
  15. DEVICE [Concomitant]
     Active Substance: DEVICE
  16. TYLENOL [Concomitant]
     Active Substance: ACETAMINOPHEN
  17. CLARITIN [Concomitant]
     Active Substance: LORATADINE

REACTIONS (6)
  - Palpitations [None]
  - Subarachnoid haemorrhage [None]
  - Migraine [None]
  - Mood swings [None]
  - Hypotension [None]
  - Hypertension [None]

NARRATIVE: CASE EVENT DATE: 20240113
